FAERS Safety Report 6501599-1 (Version None)
Quarter: 2009Q4

REPORT INFORMATION
  Report Type: 
  Country: None (occurrence: None)
  Receive Date: 20091214
  Receipt Date: 20091214
  Transmission Date: 20100525
  Serious: Yes (Other)
  Sender: FDA-Public Use
  Company Number: None

PATIENT
  Age: 61 Year
  Sex: Female
  Weight: 99.3377 kg

DRUGS (2)
  1. SAVELLA [Suspect]
     Indication: DEPRESSION
     Dosage: 12.5 BID PO
     Route: 048
     Dates: start: 20091207, end: 20091211
  2. SAVELLA [Suspect]
     Indication: FIBROMYALGIA
     Dosage: 12.5 BID PO
     Route: 048
     Dates: start: 20091207, end: 20091211

REACTIONS (4)
  - BLOOD PRESSURE INCREASED [None]
  - CHILLS [None]
  - DEHYDRATION [None]
  - HYPERHIDROSIS [None]
